FAERS Safety Report 8847625 (Version 2)
Quarter: 2014Q2

REPORT INFORMATION
  Report Type: Spontaneous
  Country: CA (occurrence: CA)
  Receive Date: 20121018
  Receipt Date: 20140404
  Transmission Date: 20141212
  Serious: Yes (Death, Other)
  Sender: FDA-Public Use
  Company Number: CA-ELI_LILLY_AND_COMPANY-CA201210001936

PATIENT
  Age: 64 Year
  Sex: Male

DRUGS (9)
  1. PROZAC [Suspect]
     Indication: BIPOLAR DISORDER
     Dosage: 1 DF, UNKNOWN
  2. BENYLIN DM [Interacting]
     Indication: BRONCHITIS
     Dosage: 1 DF, UNKNOWN
     Route: 048
     Dates: start: 2011
  3. BIAXIN XL [Interacting]
     Indication: BRONCHITIS
     Dosage: 2 DF, QD
     Route: 065
     Dates: start: 2011
  4. BIAXIN XL [Interacting]
     Indication: SINUSITIS
  5. ZYPREXA [Suspect]
     Indication: PRODUCT USED FOR UNKNOWN INDICATION
     Dosage: 1 DF, UNKNOWN
     Route: 065
  6. WELLBUTRIN [Suspect]
     Indication: PRODUCT USED FOR UNKNOWN INDICATION
     Dosage: 1 DF, UNKNOWN
     Route: 065
  7. SERAX [Suspect]
     Indication: PRODUCT USED FOR UNKNOWN INDICATION
     Dosage: 1 DF, UNKNOWN
     Route: 065
  8. RESTORIL [Suspect]
     Indication: PRODUCT USED FOR UNKNOWN INDICATION
     Dosage: 1 DF, UNKNOWN
     Route: 065
  9. NYQUIL [Interacting]
     Indication: PRODUCT USED FOR UNKNOWN INDICATION
     Dosage: 1 DF, UNKNOWN
     Route: 065

REACTIONS (9)
  - Cardiac failure [Fatal]
  - Accidental poisoning [Fatal]
  - Pulmonary oedema [Fatal]
  - Serotonin syndrome [Fatal]
  - Somnolence [Unknown]
  - Drug interaction [Unknown]
  - Inhibitory drug interaction [Unknown]
  - Bronchitis [Unknown]
  - Sinusitis [Unknown]
